FAERS Safety Report 16052478 (Version 2)
Quarter: 2019Q1

REPORT INFORMATION
  Report Type: Spontaneous
  Country: US (occurrence: US)
  Receive Date: 20190308
  Receipt Date: 20190313
  Transmission Date: 20190418
  Serious: Yes (Other)
  Sender: FDA-Public Use
  Company Number: US-PFIZER INC-2019100729

PATIENT
  Age: 26 Year
  Sex: Male
  Weight: 66 kg

DRUGS (1)
  1. XANAX [Suspect]
     Active Substance: ALPRAZOLAM
     Indication: ANXIETY
     Dosage: UNK

REACTIONS (7)
  - Mental disorder [Unknown]
  - Hypertension [Unknown]
  - Palpitations [Unknown]
  - Anxiety [Unknown]
  - Cardiac disorder [Unknown]
  - Insomnia [Unknown]
  - Dependence [Not Recovered/Not Resolved]

NARRATIVE: CASE EVENT DATE: 2014
